FAERS Safety Report 8137948-0 (Version None)
Quarter: 2012Q1

REPORT INFORMATION
  Report Type: 
  Country: None (occurrence: None)
  Receive Date: 20120215
  Receipt Date: 20120210
  Transmission Date: 20120608
  Serious: Yes (Death, Other)
  Sender: FDA-Public Use
  Company Number: FR-GENZYME-CLOF-1001942

PATIENT
  Sex: Female
  Weight: 70 kg

DRUGS (6)
  1. IMPORTAL [Concomitant]
     Indication: CONSTIPATION
     Dosage: 20 G, QD
     Dates: start: 20111204, end: 20111210
  2. ETOPOSIDE [Concomitant]
     Indication: ACUTE LYMPHOCYTIC LEUKAEMIA RECURRENT
     Dosage: 260 MG, QD
     Dates: start: 20111207, end: 20111211
  3. EVOLTRA [Suspect]
     Indication: LEUKAEMIA RECURRENT
     Dosage: 70 MG, QD
     Route: 042
     Dates: start: 20111207, end: 20111211
  4. CYCLOPHOSPHAMIDE [Concomitant]
     Indication: ACUTE LYMPHOCYTIC LEUKAEMIA RECURRENT
     Dosage: 700 MG, QD
     Dates: start: 20111207, end: 20111211
  5. DELURSAN [Concomitant]
     Indication: NEPHRITIS
     Dosage: 750 MG, QD
     Dates: start: 20111207, end: 20111211
  6. FUNGIZONE [Concomitant]
     Indication: CANDIDIASIS
     Dosage: 30 ML, QD
     Dates: start: 20111128, end: 20111210

REACTIONS (3)
  - SEPTIC SHOCK [None]
  - MULTI-ORGAN FAILURE [None]
  - CARDIAC ARREST [None]
